FAERS Safety Report 7610344-8 (Version None)
Quarter: 2011Q3

REPORT INFORMATION
  Report Type: 
  Country: None (occurrence: None)
  Receive Date: 20110707
  Receipt Date: 20110621
  Transmission Date: 20111222
  Serious: Yes (Hospitalization, Other)
  Sender: FDA-Public Use
  Company Number: CIP11000521

PATIENT
  Age: 67 Year
  Sex: Female

DRUGS (3)
  1. ACTONEL [Suspect]
     Dosage: ORAL
     Route: 048
  2. FOSAMAX [Suspect]
  3. BONIVA [Suspect]
     Dosage: 150 MG DAILY,

REACTIONS (8)
  - ARTHRALGIA [None]
  - FEMUR FRACTURE [None]
  - FRACTURE DISPLACEMENT [None]
  - DEVICE BREAKAGE [None]
  - MUSCULAR WEAKNESS [None]
  - PAIN IN EXTREMITY [None]
  - FRACTURE NONUNION [None]
  - FALL [None]
